FAERS Safety Report 5712145-4 (Version None)
Quarter: 2008Q2

REPORT INFORMATION
  Report Type: 
  Country: None (occurrence: None)
  Receive Date: 20080421
  Receipt Date: 20080421
  Transmission Date: 20081010
  Serious: Yes (Other)
  Sender: FDA-Public Use
  Company Number: None

PATIENT
  Age: 41 Year
  Sex: Female
  Weight: 136.0791 kg

DRUGS (2)
  1. CYMBALTA [Suspect]
     Indication: DEPRESSION
     Dosage: 30MG BID PO
     Route: 048
     Dates: start: 20070401, end: 20080420
  2. CYMBALTA [Suspect]
     Indication: FIBROMYALGIA
     Dosage: 30MG BID PO
     Route: 048
     Dates: start: 20070401, end: 20080420

REACTIONS (9)
  - DEPRESSION [None]
  - DIZZINESS [None]
  - ECONOMIC PROBLEM [None]
  - FEELING ABNORMAL [None]
  - HYPERHIDROSIS [None]
  - INJURY [None]
  - PAIN [None]
  - PRESYNCOPE [None]
  - WEIGHT INCREASED [None]
